FAERS Safety Report 9522205 (Version 2)
Quarter: 2014Q1

REPORT INFORMATION
  Report Type: Spontaneous
  Country: US (occurrence: None)
  Receive Date: 20130305
  Receipt Date: 20140306
  Transmission Date: 20141002
  Serious: Yes (Hospitalization, Other)
  Sender: FDA-Public Use
  Company Number: 163-21880-12071519

PATIENT
  Age: 70 Year
  Sex: Male

DRUGS (27)
  1. REVLIMID [Suspect]
     Indication: PLASMA CELL MYELOMA
     Dosage: 25 MG, 21 IN 21 D, PO
     Route: 048
     Dates: start: 20120524, end: 20120704
  2. DOXAZOSIN (DOXAZOSIN) [Concomitant]
  3. ALLOPURINOL (ALLOPURINOL) [Concomitant]
  4. DILANTIN (PHENYTOIN SODIUM) [Concomitant]
  5. LEVETIRACETAM (LEVETIRACETAM) [Concomitant]
  6. OMEGA 3 FISH OIL (FISH OIL) [Concomitant]
  7. AZOPT (BRINZOLAMIDE) [Concomitant]
  8. SENNA-S [Concomitant]
  9. MULTIPLE VITAMINS (MULTIPLE VITAMINS) [Concomitant]
  10. OMEPRAZOLE )OMEPRAZOLE) [Concomitant]
  11. ZOFRAN ODT [Concomitant]
  12. NEURONTIN (GABAPENTIN) [Concomitant]
  13. MEGESTROL (MEGESTROL) [Concomitant]
  14. COMPAZINE (PROCHLORPERAZINE EDISYLATE) [Concomitant]
  15. AMLODIPINE (AMLODIPINE) [Concomitant]
  16. ATENOLOL (ATENOLOL) [Concomitant]
  17. POTASSIUM (POTASSIUM) [Concomitant]
  18. HYDRALAZINE (HYDRALAZINE) [Concomitant]
  19. ROBITUSSIN DM [Concomitant]
  20. LORATADINE (LORATADINE) [Concomitant]
  21. MORPHINE (MORPHINE) [Concomitant]
  22. GABAPENTIN (GABAPENTIN) [Concomitant]
  23. KLOR-CON (POTASSIUM CHLORIDE) [Concomitant]
  24. DECADRON (DEXAMETHASONE) [Concomitant]
  25. AREDIA (PAMIDRONATE DISPDIUM) [Concomitant]
  26. MYLANTA (MYLANTA) [Concomitant]
  27. MSIR (MORPHINE SULFATE) [Concomitant]

REACTIONS (9)
  - Deep vein thrombosis [None]
  - Full blood count decreased [None]
  - Dyspnoea [None]
  - Anaemia [None]
  - Pyrexia [None]
  - Fatigue [None]
  - Renal impairment [None]
  - Pneumonia [None]
  - Drug intolerance [None]
